FAERS Safety Report 21596999 (Version 1)
Quarter: 2022Q4

REPORT INFORMATION
  Report Type: Spontaneous
  Country: US (occurrence: None)
  Receive Date: 20221114
  Receipt Date: 20221114
  Transmission Date: 20230112
  Serious: Yes (unspecified)
  Sender: FDA-Public Use
  Company Number: None

PATIENT
  Age: 46 Year
  Sex: Female
  Weight: 61.2 kg

DRUGS (17)
  1. AIMOVIG [Suspect]
     Active Substance: ERENUMAB-AOOE
     Indication: Migraine
     Dosage: OTHER FREQUENCY : ONCE A MONTH;?
     Route: 030
     Dates: start: 20211122, end: 20221021
  2. WELLBUTRIN [Concomitant]
     Active Substance: BUPROPION HYDROCHLORIDE
  3. EFFEXOR [Concomitant]
     Active Substance: VENLAFAXINE HYDROCHLORIDE
  4. SUCRALFATE [Concomitant]
     Active Substance: SUCRALFATE
  5. OMEPRAZOLE [Concomitant]
     Active Substance: OMEPRAZOLE
  6. LOSARTAN [Concomitant]
     Active Substance: LOSARTAN
  7. POTASSIUM [Concomitant]
     Active Substance: POTASSIUM
  8. UNSPECIFIED INGREDIENT [Concomitant]
     Active Substance: UNSPECIFIED INGREDIENT
  9. Tramadol as needed [Concomitant]
  10. Toradol as needed [Concomitant]
  11. ZOFRAN [Concomitant]
     Active Substance: ONDANSETRON HYDROCHLORIDE
  12. tizanadine as needed [Concomitant]
  13. Hydroxyzine as needed [Concomitant]
  14. BLACK COHOSH [Concomitant]
     Active Substance: BLACK COHOSH
  15. MAGNESIUM [Concomitant]
     Active Substance: MAGNESIUM
  16. baswalla [Concomitant]
  17. MELATONIN [Concomitant]
     Active Substance: MELATONIN

REACTIONS (4)
  - Hypertension [None]
  - Constipation [None]
  - Inappropriate schedule of product administration [None]
  - Blood pressure decreased [None]

NARRATIVE: CASE EVENT DATE: 20211215
